FAERS Safety Report 10063990 (Version 2)
Quarter: 2014Q2

REPORT INFORMATION
  Report Type: Report from Study
  Country: PE (occurrence: PE)
  Receive Date: 20140408
  Receipt Date: 20140625
  Transmission Date: 20141212
  Serious: Yes (Hospitalization)
  Sender: FDA-Public Use
  Company Number: PE-ROCHE-1379514

PATIENT
  Age: 16 Year
  Sex: Male

DRUGS (2)
  1. PULMOZYME [Suspect]
     Indication: CYSTIC FIBROSIS
     Route: 048
     Dates: start: 20060829
  2. PULMOZYME [Suspect]
     Route: 048
     Dates: start: 20111231

REACTIONS (1)
  - Pseudomonas infection [Recovered/Resolved]
